FAERS Safety Report 8378046-0 (Version None)
Quarter: 2012Q2

REPORT INFORMATION
  Report Type: 
  Country: None (occurrence: None)
  Receive Date: 20120522
  Receipt Date: 20120507
  Transmission Date: 20120825
  Serious: No
  Sender: FDA-Public Use
  Company Number: US-ASTRAZENECA-2012SE29337

PATIENT
  Age: 71 Year
  Sex: Female
  Weight: 59 kg

DRUGS (4)
  1. LEVOTHYROXINE SODIUM [Concomitant]
     Indication: THYROID DISORDER
     Route: 048
     Dates: start: 20100101
  2. PRILOSEC OTC [Suspect]
     Indication: GASTROOESOPHAGEAL REFLUX DISEASE
     Route: 048
     Dates: start: 20120101
  3. PREVACID [Concomitant]
  4. NEXIUM [Suspect]
     Indication: GASTROOESOPHAGEAL REFLUX DISEASE
     Route: 048

REACTIONS (10)
  - OROPHARYNGEAL PAIN [None]
  - RASH [None]
  - MUSCLE SPASMS [None]
  - DYSPEPSIA [None]
  - OFF LABEL USE [None]
  - INTENTIONAL DRUG MISUSE [None]
  - GLOSSODYNIA [None]
  - DRUG HYPERSENSITIVITY [None]
  - THROAT IRRITATION [None]
  - DYSPHAGIA [None]
